FAERS Safety Report 7956250-0 (Version None)
Quarter: 2011Q4

REPORT INFORMATION
  Report Type: 
  Country: None (occurrence: None)
  Receive Date: 20111205
  Receipt Date: 20111201
  Transmission Date: 20120403
  Serious: Yes (Hospitalization)
  Sender: FDA-Public Use
  Company Number: CA-JNJFOC-20111108318

PATIENT
  Sex: Male
  Weight: 116.9 kg

DRUGS (11)
  1. FUROSEMIDE [Concomitant]
  2. REMICADE [Suspect]
     Indication: CROHN'S DISEASE
     Dosage: HAS HAD 37 INFUSIONS
  3. FOLIC ACID [Concomitant]
  4. ASPIRIN [Concomitant]
  5. VITAMIN B-12 [Concomitant]
  6. MICARDIS [Concomitant]
  7. ATENOLOL [Concomitant]
  8. K-CITRA [Concomitant]
  9. JANUVIA [Concomitant]
  10. PANTOPRAZOLE SODIUM [Concomitant]
  11. METFORMIN HCL [Concomitant]

REACTIONS (2)
  - DIARRHOEA HAEMORRHAGIC [None]
  - SURGERY [None]
